FAERS Safety Report 13802463 (Version 1)
Quarter: 2017Q3

REPORT INFORMATION
  Report Type: Spontaneous
  Country: GB (occurrence: GB)
  Receive Date: 20170728
  Receipt Date: 20170728
  Transmission Date: 20171127
  Serious: Yes (Disabling, Other)
  Sender: FDA-Public Use
  Company Number: GB-TEVA-787405ACC

PATIENT
  Age: 66 Year
  Sex: Female
  Weight: 57 kg

DRUGS (6)
  1. MERCURY PHARMS LEVOTHYROXINE [Concomitant]
     Dosage: 50 MICROGRAM DAILY;
     Route: 048
  2. OMEGA-6 FATTY ACIDS [Concomitant]
     Active Substance: OMEGA-6 FATTY ACIDS
     Dosage: DAILY
     Route: 048
  3. VITEYES 2 [Concomitant]
     Dosage: DAILY
     Route: 048
  4. OMEGA-3 ACIDS [Concomitant]
     Active Substance: OMEGA-3 FATTY ACIDS
     Dosage: DAILY
     Route: 048
  5. OMEGA-9 FATTY ACIDS [Concomitant]
     Dosage: DAILY
     Route: 048
  6. TEVA UK MIRTAZAPINE [Suspect]
     Active Substance: MIRTAZAPINE
     Indication: DEPRESSION
     Dosage: STARTED IN AUTUMN AND STOPPED IN WINTER 2016.
     Route: 048
     Dates: start: 2016, end: 2016

REACTIONS (10)
  - Confusional state [Recovered/Resolved]
  - Thought blocking [Recovered/Resolved]
  - Product substitution issue [Unknown]
  - Insomnia [Recovered/Resolved]
  - Disorientation [Recovered/Resolved]
  - Depression [Recovered/Resolved]
  - Reaction to excipient [Unknown]
  - Suicidal ideation [Recovered/Resolved]
  - Drug ineffective [Unknown]
  - Fatigue [Recovered/Resolved]
